FAERS Safety Report 4893013-7 (Version None)
Quarter: 2005Q4

REPORT INFORMATION
  Report Type: 
  Country: None (occurrence: None)
  Receive Date: 20051223
  Receipt Date: 20050902
  Transmission Date: 20060501
  Serious: No
  Sender: FDA-Public Use
  Company Number: 217536

PATIENT
  Age: 72 Year
  Sex: Male

DRUGS (1)
  1. AVASTIN [Suspect]
     Indication: RENAL CELL CARCINOMA STAGE UNSPECIFIED
     Dosage: 10 MG/KG, Q2W
     Dates: end: 20050728

REACTIONS (1)
  - BLOOD CREATININE INCREASED [None]
